FAERS Safety Report 7981364-9 (Version None)
Quarter: 2011Q4

REPORT INFORMATION
  Report Type: 
  Country: None (occurrence: None)
  Receive Date: 20111213
  Receipt Date: 20111127
  Transmission Date: 20120403
  Serious: Yes (Death)
  Sender: FDA-Public Use
  Company Number: 2011NA000108

PATIENT
  Age: 18 Year
  Sex: Female

DRUGS (3)
  1. DICLOFENAC SODIUM [Suspect]
     Indication: PRODUCT USED FOR UNKNOWN INDICATION
     Dosage: 600 MG; PO
     Route: 048
  2. FERROUS SULFATE TAB [Suspect]
     Indication: PRODUCT USED FOR UNKNOWN INDICATION
     Dosage: 6 GM; PO
     Route: 048
  3. DIAZEPAM [Suspect]
     Indication: PRODUCT USED FOR UNKNOWN INDICATION
     Dosage: 60 MG; PO
     Route: 048

REACTIONS (13)
  - MULTIPLE DRUG OVERDOSE [None]
  - INFECTION [None]
  - HEPATIC FAILURE [None]
  - ENCEPHALOPATHY [None]
  - LIVER TRANSPLANT [None]
  - RENAL FAILURE [None]
  - HEPATIC NECROSIS [None]
  - PULMONARY HYPERTENSION [None]
  - ACUTE RESPIRATORY DISTRESS SYNDROME [None]
  - SHOCK [None]
  - INTRACRANIAL PRESSURE INCREASED [None]
  - ABSCESS [None]
  - ASPERGILLOSIS [None]
